FAERS Safety Report 7860240 (Version 3)
Quarter: 2012Q4

REPORT INFORMATION
  Report Type: 
  Country: US (occurrence: US)
  Receive Date: 20110317
  Receipt Date: 20121025
  Transmission Date: 20130627
  Serious: Yes (Death, Other)
  Sender: FDA-Public Use
  Company Number: US-ROCHE-765537

PATIENT
  Age: 52 Year
  Sex: Male
  Weight: 82.1 kg

DRUGS (15)
  1. CAPECITABINE [Suspect]
     Indication: COLORECTAL CANCER METASTATIC
     Dosage: DOSE: 1500 MG IN MORNING AND 1500 MG IN EVENING
     Route: 048
     Dates: start: 201009, end: 201101
  2. CAPECITABINE [Suspect]
     Indication: COLON CANCER
  3. AVASTIN [Suspect]
     Indication: COLON CANCER
     Route: 065
  4. 5-FU [Concomitant]
  5. FOLINIC ACID [Concomitant]
  6. NORVASC [Concomitant]
     Route: 048
  7. LISINOPRIL [Concomitant]
     Route: 048
  8. LORTAB [Concomitant]
     Dosage: AS NEEDED; DRUG REPORTED AS LORTAB 10
     Route: 048
  9. HYDROCORTISONE [Concomitant]
     Route: 054
  10. PYRIDOXINE HCL [Concomitant]
     Route: 048
  11. VALIUM [Concomitant]
     Dosage: AS NEEDED
     Route: 048
  12. NEURONTIN [Concomitant]
     Route: 048
  13. FOLIC ACID [Concomitant]
     Route: 048
  14. ZOFRAN [Concomitant]
     Dosage: AS NEEDED
     Route: 048
  15. REGLAN [Concomitant]
     Dosage: BEFORE MEALS AND AT BEDTIME
     Route: 048

REACTIONS (8)
  - Death [Fatal]
  - Tumour marker increased [Not Recovered/Not Resolved]
  - Drug ineffective [Unknown]
  - Rectal haemorrhage [Recovering/Resolving]
  - Nausea [Unknown]
  - Abdominal pain [Unknown]
  - Fatigue [Unknown]
  - Vomiting [Unknown]
